FAERS Safety Report 14295877 (Version 3)
Quarter: 2018Q3

REPORT INFORMATION
  Report Type: Spontaneous
  Country: US (occurrence: US)
  Receive Date: 20171218
  Receipt Date: 20180917
  Transmission Date: 20181010
  Serious: Yes (Other)
  Sender: FDA-Public Use
  Company Number: US-ASTRAZENECA-2017SF27483

PATIENT
  Age: 25264 Day
  Sex: Male
  Weight: 103.4 kg

DRUGS (26)
  1. NEXIUM [Suspect]
     Active Substance: ESOMEPRAZOLE MAGNESIUM
     Indication: GASTROOESOPHAGEAL REFLUX DISEASE
     Route: 048
     Dates: start: 2006, end: 2016
  2. FEXOFENADINE [Concomitant]
     Active Substance: FEXOFENADINE\FEXOFENADINE HYDROCHLORIDE
     Route: 048
  3. FISH OIL [Concomitant]
     Active Substance: FISH OIL
  4. CRESTOR [Concomitant]
     Active Substance: ROSUVASTATIN CALCIUM
     Indication: BLOOD CHOLESTEROL INCREASED
     Dates: start: 200711, end: 200808
  5. VITAMIN D [Concomitant]
     Active Substance: CHOLECALCIFEROL
     Indication: VITAMIN D DECREASED
     Dates: start: 2012, end: 2018
  6. METHYLPREDNISOLONE. [Concomitant]
     Active Substance: METHYLPREDNISOLONE
  7. FLOMAX [Concomitant]
     Active Substance: TAMSULOSIN HYDROCHLORIDE
     Indication: HYPERTROPHY
     Route: 048
     Dates: start: 200610, end: 200810
  8. FLOMAX [Concomitant]
     Active Substance: TAMSULOSIN HYDROCHLORIDE
     Indication: HYPERTROPHY
     Route: 065
     Dates: start: 200607, end: 201103
  9. IPRATROPIUM BROMIDE/ALBUTEROL [Concomitant]
     Active Substance: ALBUTEROL SULFATE\IPRATROPIUM BROMIDE
     Dosage: 0.5 MG/3 MG PER 3ML NEBULIZER SOLUTION 1 VIAL
  10. LOVASTATIN. [Concomitant]
     Active Substance: LOVASTATIN
  11. MEDROL [Concomitant]
     Active Substance: METHYLPREDNISOLONE
  12. BENZONATATE. [Concomitant]
     Active Substance: BENZONATATE
     Route: 048
  13. ALLOPURINOL. [Concomitant]
     Active Substance: ALLOPURINOL
     Indication: GOUT
     Route: 048
     Dates: start: 200801, end: 201502
  14. NEXIUM [Suspect]
     Active Substance: ESOMEPRAZOLE MAGNESIUM
     Indication: GASTROOESOPHAGEAL REFLUX DISEASE
     Route: 048
     Dates: start: 1999, end: 2016
  15. ROLAIDS [Concomitant]
     Active Substance: CALCIUM CARBONATE\MAGNESIUM HYDROXIDE
     Dosage: 2?3 TIMES A DAY
     Dates: start: 1980, end: 2002
  16. AVODART [Concomitant]
     Active Substance: DUTASTERIDE
     Indication: HYPERTROPHY
     Dates: start: 200610, end: 200810
  17. TUMS [Concomitant]
     Active Substance: CALCIUM CARBONATE
     Dosage: 2?3 TIMES A DAY
     Dates: start: 1980, end: 2002
  18. ALLEGRA [Concomitant]
     Active Substance: FEXOFENADINE HYDROCHLORIDE
  19. AVODART [Concomitant]
     Active Substance: DUTASTERIDE
     Indication: HYPERTROPHY
     Dates: start: 201105
  20. AVODART [Concomitant]
     Active Substance: DUTASTERIDE
     Indication: HYPERTROPHY
     Dates: start: 200607, end: 201105
  21. HYDROXYZINE [Concomitant]
     Active Substance: HYDROXYZINE HYDROCHLORIDE
     Indication: PRURITUS
     Route: 048
     Dates: start: 200601
  22. SINGULAIR [Concomitant]
     Active Substance: MONTELUKAST SODIUM
     Indication: ASTHMA
     Route: 048
     Dates: start: 201401
  23. FLOVENT HFA [Concomitant]
     Active Substance: FLUTICASONE PROPIONATE
  24. LORATADINE. [Concomitant]
     Active Substance: LORATADINE
  25. BENICAR HCT [Concomitant]
     Active Substance: HYDROCHLOROTHIAZIDE\OLMESARTAN MEDOXOMIL
     Indication: HYPERTENSION
     Route: 048
     Dates: start: 200610
  26. LOPROX [Concomitant]
     Active Substance: CICLOPIROX\CICLOPIROX OLAMINE

REACTIONS (3)
  - Chronic kidney disease [Not Recovered/Not Resolved]
  - End stage renal disease [Unknown]
  - Renal injury [Unknown]

NARRATIVE: CASE EVENT DATE: 20100622
